FAERS Safety Report 18902542 (Version 1)
Quarter: 2021Q1

REPORT INFORMATION
  Report Type: Spontaneous
  Country: US (occurrence: US)
  Receive Date: 20210216
  Receipt Date: 20210216
  Transmission Date: 20210420
  Serious: No
  Sender: FDA-Public Use
  Company Number: US-009507513-2102USA005688

PATIENT
  Age: 75 Year
  Sex: Male

DRUGS (2)
  1. KEYTRUDA [Suspect]
     Active Substance: PEMBROLIZUMAB
     Indication: RENAL CELL CARCINOMA
     Dosage: UNK
     Dates: start: 20201028, end: 20210206
  2. INLYTA [Suspect]
     Active Substance: AXITINIB
     Indication: RENAL CELL CARCINOMA
     Dosage: 5 MG TWO TIMES A DAY, THEN, DOSE WAS REDUCED TO 4 MG TWO TIMES A DAY AND THEN, IT WAS REDUCED TO 3 M
     Route: 048
     Dates: start: 20201028, end: 20210206

REACTIONS (10)
  - Myalgia [Recovered/Resolved]
  - Pain in extremity [Recovered/Resolved]
  - Skin ulcer [Recovered/Resolved]
  - Product dose omission issue [Unknown]
  - Thyroid disorder [Recovered/Resolved]
  - Blood pressure increased [Recovered/Resolved]
  - Oral discomfort [Recovered/Resolved]
  - Feeding disorder [Recovered/Resolved]
  - Thinking abnormal [Recovered/Resolved]
  - Stomatitis [Recovered/Resolved]

NARRATIVE: CASE EVENT DATE: 20201028
